FAERS Safety Report 5822683-1 (Version None)
Quarter: 2008Q3

REPORT INFORMATION
  Report Type: 
  Country: None (occurrence: None)
  Receive Date: 20080725
  Receipt Date: 20080722
  Transmission Date: 20090109
  Serious: Yes (Hospitalization)
  Sender: FDA-Public Use
  Company Number: JP-BRISTOL-MYERS SQUIBB COMPANY-14275838

PATIENT
  Age: 40 Year
  Sex: Male

DRUGS (3)
  1. REYATAZ [Suspect]
     Indication: HIV INFECTION
     Dosage: INITIATED ON 13JAN05-21JUL05 DURATION :190 DAYS
     Route: 048
     Dates: start: 20051021
  2. NORVIR [Suspect]
     Indication: HIV INFECTION
     Dosage: INITIATED ON 13JAN05-21JUL05 DURATION :190 DAYS
     Route: 048
     Dates: start: 20051021
  3. TRUVADA [Suspect]
     Indication: HIV INFECTION
     Route: 048
     Dates: start: 20061127

REACTIONS (1)
  - ANGINA UNSTABLE [None]
